FAERS Safety Report 21187063 (Version 1)
Quarter: 2022Q3

REPORT INFORMATION
  Report Type: Spontaneous
  Country: US (occurrence: None)
  Receive Date: 20220808
  Receipt Date: 20220808
  Transmission Date: 20221026
  Serious: Yes (Death)
  Sender: FDA-Public Use
  Company Number: None

PATIENT
  Age: 83 Year
  Sex: Female

DRUGS (2)
  1. ERLOTINIB [Suspect]
     Active Substance: ERLOTINIB
     Indication: Lung neoplasm malignant
     Dosage: FREQUENCY : DAILY;?
     Route: 048
     Dates: start: 20210607
  2. ERLOTINIB [Suspect]
     Active Substance: ERLOTINIB
     Indication: Bronchial carcinoma

REACTIONS (1)
  - Death [None]

NARRATIVE: CASE EVENT DATE: 20220719
